FAERS Safety Report 25860892 (Version 1)
Quarter: 2025Q3

REPORT INFORMATION
  Report Type: Spontaneous
  Country: US (occurrence: US)
  Receive Date: 20250929
  Receipt Date: 20250929
  Transmission Date: 20251020
  Serious: No
  Sender: SANOFI AVENTIS
  Company Number: US-SA-2025SA289340

PATIENT
  Sex: Male

DRUGS (3)
  1. DUPIXENT [Suspect]
     Active Substance: DUPILUMAB
     Indication: Dermatitis atopic
     Dosage: 300 MG, QOW
     Route: 058
     Dates: start: 20220210
  2. CLOBETASOL [Concomitant]
     Active Substance: CLOBETASOL
  3. Proctomed [Concomitant]

REACTIONS (3)
  - Discomfort [Unknown]
  - Rash [Unknown]
  - Dermatitis atopic [Unknown]
